FAERS Safety Report 8245214-8 (Version None)
Quarter: 2012Q1

REPORT INFORMATION
  Report Type: 
  Country: None (occurrence: None)
  Receive Date: 20120329
  Receipt Date: 20120316
  Transmission Date: 20120608
  Serious: Yes (Other)
  Sender: FDA-Public Use
  Company Number: US-SPECTRUM PHARMACEUTICALS, INC.-12-F-US-00049

PATIENT

DRUGS (5)
  1. FUSILEV [Suspect]
     Indication: RECTAL CANCER
     Dosage: 368 MG, EVERY TWO WEEKS
     Route: 042
     Dates: start: 20120214
  2. OXALIPLATIN [Suspect]
     Indication: RECTAL CANCER
     Dosage: UNK
     Route: 065
  3. ONDANSETRON [Concomitant]
     Indication: PREMEDICATION
     Dosage: 24 MG, SINGLE
     Route: 042
     Dates: start: 20120214, end: 20120214
  4. FLUOROURACIL [Suspect]
     Indication: RECTAL CANCER
     Dosage: UNK
     Route: 065
  5. DEXAMETHASONE SODIUM PHOSPHATE [Concomitant]
     Indication: PREMEDICATION
     Dosage: 10 MG, SINGLE
     Route: 042
     Dates: start: 20120214, end: 20120214

REACTIONS (2)
  - FLUSHING [None]
  - URTICARIA [None]
